FAERS Safety Report 5203780-0 (Version None)
Quarter: 2007Q1

REPORT INFORMATION
  Report Type: 
  Country: None (occurrence: None)
  Receive Date: 20070109
  Receipt Date: 20070109
  Transmission Date: 20070707
  Serious: No
  Sender: FDA-Public Use
  Company Number: None

PATIENT
  Sex: Female
  Weight: 19 kg

DRUGS (4)
  1. CYTARABINE [Suspect]
     Dosage: 70 MG
  2. DAUNORUBICIN HCL [Suspect]
     Dosage: 19.3 MG
  3. METHOTREXATE [Suspect]
     Dosage: 12 MG
  4. VINCRISTINE SULFATE [Suspect]
     Dosage: 1.16 MG

REACTIONS (18)
  - ABDOMINAL DISCOMFORT [None]
  - ABDOMINAL DISTENSION [None]
  - ACUTE LYMPHOCYTIC LEUKAEMIA [None]
  - CARDIAC ARREST [None]
  - CARDIO-RESPIRATORY ARREST [None]
  - ENDOTRACHEAL INTUBATION COMPLICATION [None]
  - GALLBLADDER DISORDER [None]
  - GALLBLADDER OEDEMA [None]
  - HAEMORRHAGE [None]
  - HEPATIC LESION [None]
  - HYPOTENSION [None]
  - INTESTINAL PERFORATION [None]
  - NEUTROPENIA [None]
  - PNEUMATOSIS [None]
  - SEPSIS [None]
  - SEPTIC EMBOLUS [None]
  - SEPTIC SHOCK [None]
  - SPLENIC INFARCTION [None]
